FAERS Safety Report 11348521 (Version 1)
Quarter: 2015Q3

REPORT INFORMATION
  Report Type: Spontaneous
  Country: CA (occurrence: CA)
  Receive Date: 20150806
  Receipt Date: 20150806
  Transmission Date: 20151125
  Serious: Yes (Other)
  Sender: FDA-Public Use
  Company Number: CA-JNJFOC-20150720794

PATIENT
  Sex: Female
  Weight: 51 kg

DRUGS (2)
  1. TOPAMAX [Suspect]
     Active Substance: TOPIRAMATE
     Indication: BIPOLAR II DISORDER
     Route: 048
  2. MINOCYCLINE [Suspect]
     Active Substance: MINOCYCLINE\MINOCYCLINE HYDROCHLORIDE
     Indication: ACNE
     Route: 048

REACTIONS (12)
  - Product use issue [Unknown]
  - Mania [Recovered/Resolved]
  - Psychomotor hyperactivity [Recovered/Resolved]
  - Psychotic disorder [Recovered/Resolved]
  - Tinnitus [Recovered/Resolved]
  - Cognitive disorder [Recovered/Resolved]
  - Fear [Recovered/Resolved]
  - Speech disorder [Recovered/Resolved]
  - Intracranial pressure increased [Recovered/Resolved]
  - Nervous system disorder [Recovered/Resolved]
  - Depersonalisation [Recovered/Resolved]
  - Depression [Recovered/Resolved]
